FAERS Safety Report 8417962-8 (Version None)
Quarter: 2012Q2

REPORT INFORMATION
  Report Type: 
  Country: None (occurrence: None)
  Receive Date: 20120531
  Receipt Date: 20120515
  Transmission Date: 20120825
  Serious: Yes (Death, Other)
  Sender: FDA-Public Use
  Company Number: 20120330

PATIENT
  Age: 45 Year
  Sex: Female

DRUGS (1)
  1. DEXAMETHASONE SODIUM PHOSPHATE [Suspect]
     Indication: THYROID CANCER
     Dosage: 8 MG

REACTIONS (6)
  - VASCULITIS CEREBRAL [None]
  - OFF LABEL USE [None]
  - SIMPLEX VIRUS TEST POSITIVE [None]
  - THERAPEUTIC RESPONSE DECREASED [None]
  - SKIN LESION [None]
  - ENCEPHALITIS HERPES [None]
